FAERS Safety Report 6073236-4 (Version None)
Quarter: 2009Q1

REPORT INFORMATION
  Report Type: 
  Country: None (occurrence: None)
  Receive Date: 20090211
  Receipt Date: 20090105
  Transmission Date: 20090719
  Serious: No
  Sender: FDA-Public Use
  Company Number: A0758341A

PATIENT
  Age: 76 Year
  Sex: Female

DRUGS (7)
  1. ALTABAX [Suspect]
     Indication: RASH
     Dosage: 1APP PER DAY
     Route: 061
     Dates: start: 20081121, end: 20081122
  2. COZAAR [Concomitant]
  3. CLONIDINE HCL [Concomitant]
  4. HYDROCHLOROTHIAZIDE [Concomitant]
  5. NEXIUM [Concomitant]
  6. THYROID MEDICATION [Concomitant]
  7. ZYRTEC [Concomitant]

REACTIONS (2)
  - APPLICATION SITE IRRITATION [None]
  - RASH [None]
